FAERS Safety Report 8168158-9 (Version None)
Quarter: 2012Q1

REPORT INFORMATION
  Report Type: 
  Country: None (occurrence: None)
  Receive Date: 20120222
  Receipt Date: 20120207
  Transmission Date: 20120608
  Serious: Yes (Life-Threatening, Other)
  Sender: FDA-Public Use
  Company Number: AUR-APL-2012-00802

PATIENT
  Age: 82 Year
  Sex: Male

DRUGS (7)
  1. ASPIRIN [Concomitant]
  2. ATACAND [Concomitant]
  3. BISOPROLOL SANDOZ(BISOPROLOL FUMARATE) [Concomitant]
  4. SIMVASTATIN [Suspect]
     Indication: PROPHYLAXIS
     Dosage: 40 MG (40 MG, 1 IN 1 D),ORAL
     Route: 048
     Dates: start: 20120101
  5. PLAVIX [Concomitant]
  6. MAREVAN ^NYCOMED^(WARFARIN SODIUM) [Concomitant]
  7. CORDARONE [Suspect]
     Indication: PROPHYLAXIS
     Dosage: 200 MG (200 MG, 1 IN 1 D),

REACTIONS (4)
  - RENAL FAILURE [None]
  - BLOOD PRESSURE SYSTOLIC INCREASED [None]
  - RHABDOMYOLYSIS [None]
  - ALANINE AMINOTRANSFERASE INCREASED [None]
